FAERS Safety Report 5608566-0 (Version None)
Quarter: 2008Q1

REPORT INFORMATION
  Report Type: 
  Country: None (occurrence: None)
  Receive Date: 20080111
  Receipt Date: 20070515
  Transmission Date: 20080703
  Serious: Yes (Hospitalization)
  Sender: FDA-Public Use
  Company Number: HQWYE233916MAY07

PATIENT
  Age: 44 Year
  Sex: Female
  Weight: 54.48 kg

DRUGS (3)
  1. PREMPRO [Suspect]
     Indication: PROPHYLAXIS
     Dosage: 0.625 MG/2.5 MG, ORAL
     Route: 048
     Dates: start: 20070302, end: 20070408
  2. PREMPRO [Suspect]
     Indication: RESORPTION BONE INCREASED
     Dosage: 0.625 MG/2.5 MG, ORAL
     Route: 048
     Dates: start: 20070302, end: 20070408
  3. CALCIUM (CALCIUM) [Concomitant]

REACTIONS (1)
  - CEREBROVASCULAR ACCIDENT [None]
